FAERS Safety Report 17202306 (Version 2)
Quarter: 2020Q1

REPORT INFORMATION
  Report Type: Spontaneous
  Country: US (occurrence: US)
  Receive Date: 20191226
  Receipt Date: 20200319
  Transmission Date: 20200409
  Serious: No
  Sender: FDA-Public Use
  Company Number: US-PFIZER INC-2019553488

PATIENT
  Age: 56 Year
  Sex: Female

DRUGS (3)
  1. LYRICA [Suspect]
     Active Substance: PREGABALIN
     Indication: BACK PAIN
     Dosage: UNK, 3X/DAY (1-2 CAPSULES EVERY 8 HOURS)
     Route: 048
     Dates: start: 20190314
  2. LYRICA [Suspect]
     Active Substance: PREGABALIN
     Dosage: UNK, AS NEEDED (1-2 CAPSULE EVERY 8 HOURS AS NEEDED)
     Route: 048
  3. LYRICA [Suspect]
     Active Substance: PREGABALIN
     Dosage: UNK, 3X/DAY (1-2 CAPSULES EVERY 8 HOURS)
     Dates: start: 20191216

REACTIONS (1)
  - Drug ineffective [Unknown]
